FAERS Safety Report 10056671 (Version 2)
Quarter: 2014Q2

REPORT INFORMATION
  Report Type: Spontaneous
  Country: BE (occurrence: BE)
  Receive Date: 20140403
  Receipt Date: 20140403
  Transmission Date: 20141212
  Serious: Yes (Hospitalization)
  Sender: FDA-Public Use
  Company Number: BE-BRISTOL-MYERS SQUIBB COMPANY-20472973

PATIENT
  Age: 46 Year
  Sex: Male

DRUGS (1)
  1. DASATINIB [Suspect]
     Indication: CHRONIC MYELOID LEUKAEMIA
     Dosage: DOSE WAS REDUCED FROM 100MG-50MG
     Route: 048
     Dates: start: 201008, end: 20140310

REACTIONS (2)
  - Neuritis [Recovered/Resolved]
  - Rash [Unknown]
